FAERS Safety Report 5014626-8 (Version None)
Quarter: 2006Q2

REPORT INFORMATION
  Report Type: 
  Country: None (occurrence: None)
  Receive Date: 20060531
  Receipt Date: 20060519
  Transmission Date: 20061013
  Serious: Yes (Other)
  Sender: FDA-Public Use
  Company Number: 2006SE02865

PATIENT
  Sex: Female

DRUGS (9)
  1. NOLVADEX [Suspect]
     Indication: BREAST CANCER
  2. LEVAXIN [Concomitant]
     Route: 048
  3. BISOPROLOL [Concomitant]
     Route: 048
  4. EPROSARTAN MESILATE [Concomitant]
     Route: 048
  5. SALURES [Concomitant]
     Route: 048
  6. GLUCOPHAGE [Concomitant]
     Route: 048
  7. OMEPRAZOLE [Concomitant]
     Route: 048
  8. FLUTIDE NASAL [Concomitant]
  9. SEREVENT [Concomitant]

REACTIONS (1)
  - TOXIC EPIDERMAL NECROLYSIS [None]
